FAERS Safety Report 13469446 (Version 1)
Quarter: 2017Q2

REPORT INFORMATION
  Report Type: Spontaneous
  Country: ES (occurrence: ES)
  Receive Date: 20170421
  Receipt Date: 20170421
  Transmission Date: 20170830
  Serious: Yes (Death)
  Sender: FDA-Public Use
  Company Number: ES-IMPAX LABORATORIES, INC-2017-IPXL-01023

PATIENT
  Age: 48 Year
  Sex: Female

DRUGS (5)
  1. PRAZIQUANTEL [Concomitant]
     Active Substance: PRAZIQUANTEL
     Indication: NEUROCYSTICERCOSIS
     Dosage: UNK
     Route: 065
     Dates: start: 201610
  2. ALBENZA [Suspect]
     Active Substance: ALBENDAZOLE
     Indication: NEUROCYSTICERCOSIS
     Dosage: 400 MG, 1ST CYCLE FOR 4 WEEKS
     Route: 048
     Dates: start: 201610
  3. ALBENZA [Suspect]
     Active Substance: ALBENDAZOLE
     Dosage: 400MG, ONE TABLET BID FOR 4 WEEKS
     Route: 048
     Dates: start: 20170302, end: 20170311
  4. ALBENZA [Suspect]
     Active Substance: ALBENDAZOLE
     Dosage: 400 MG, UNK
     Route: 048
     Dates: start: 201701, end: 20170210
  5. PRAZIQUANTEL [Concomitant]
     Active Substance: PRAZIQUANTEL
     Dosage: UNK
     Route: 065
     Dates: start: 201701, end: 20170210

REACTIONS (3)
  - Drug ineffective for unapproved indication [Unknown]
  - Hepatitis fulminant [Fatal]
  - Aplastic anaemia [Fatal]

NARRATIVE: CASE EVENT DATE: 20170311
